FAERS Safety Report 25104244 (Version 1)
Quarter: 2025Q1

REPORT INFORMATION
  Report Type: Spontaneous
  Country: IT (occurrence: IT)
  Receive Date: 20250321
  Receipt Date: 20250321
  Transmission Date: 20250408
  Serious: Yes (Disabling)
  Sender: ACCORD
  Company Number: None

PATIENT
  Age: 60 Year
  Sex: Female

DRUGS (3)
  1. CARBOPLATIN [Suspect]
     Active Substance: CARBOPLATIN
     Indication: Lung neoplasm
     Dates: start: 20241029, end: 20241119
  2. NIVOLUMAB [Suspect]
     Active Substance: NIVOLUMAB
     Indication: Lung neoplasm
     Dates: start: 20241029
  3. PEMETREXED [Concomitant]
     Active Substance: PEMETREXED
     Indication: Lung neoplasm
     Dates: start: 20241029, end: 20241119

REACTIONS (7)
  - Cough [Recovering/Resolving]
  - Dyspnoea exertional [Recovering/Resolving]
  - Nausea [Recovering/Resolving]
  - Dysgeusia [Recovering/Resolving]
  - Flatulence [Recovered/Resolved]
  - Arthralgia [Recovering/Resolving]
  - Abdominal pain upper [Recovered/Resolved]

NARRATIVE: CASE EVENT DATE: 20241210
